FAERS Safety Report 12704606 (Version 3)
Quarter: 2016Q3

REPORT INFORMATION
  Report Type: Spontaneous
  Country: NL (occurrence: NL)
  Receive Date: 20160831
  Receipt Date: 20160922
  Transmission Date: 20161109
  Serious: Yes (Other)
  Sender: FDA-Public Use
  Company Number: NL-TEVA-688882ISR

PATIENT
  Sex: Male

DRUGS (1)
  1. FLUVASTATIN 20 MG [Suspect]
     Active Substance: FLUVASTATIN SODIUM
     Indication: PRODUCT USED FOR UNKNOWN INDICATION
     Dosage: 20 MILLIGRAM DAILY;

REACTIONS (1)
  - Muscle rupture [Unknown]
